FAERS Safety Report 7402080-8 (Version None)
Quarter: 2011Q2

REPORT INFORMATION
  Report Type: 
  Country: None (occurrence: None)
  Receive Date: 20110405
  Receipt Date: 20110405
  Transmission Date: 20111010
  Serious: Yes (Hospitalization)
  Sender: FDA-Public Use
  Company Number: None

PATIENT

DRUGS (1)
  1. RELI-ON ALCOHOL SWABS W/PAIN RELIF [Suspect]
     Dates: start: 20110101, end: 20110301

REACTIONS (8)
  - PYREXIA [None]
  - TENDERNESS [None]
  - CHILLS [None]
  - ERYTHEMA [None]
  - INFLAMMATION [None]
  - PRODUCT CONTAMINATION MICROBIAL [None]
  - SEPSIS [None]
  - PRODUCT QUALITY ISSUE [None]
